FAERS Safety Report 7070873-5 (Version None)
Quarter: 2010Q4

REPORT INFORMATION
  Report Type: 
  Country: None (occurrence: None)
  Receive Date: 20101029
  Receipt Date: 20101025
  Transmission Date: 20110411
  Serious: Yes (Other)
  Sender: FDA-Public Use
  Company Number: US-PFIZER INC-2010014746

PATIENT
  Sex: Female
  Weight: 49.9 kg

DRUGS (1)
  1. DEPO-PROVERA [Suspect]
     Indication: CONTRACEPTION
     Dosage: UNK
     Dates: start: 20090123, end: 20090123

REACTIONS (7)
  - DANDRUFF [None]
  - DRY SKIN [None]
  - PIGMENTATION DISORDER [None]
  - PRURITUS GENERALISED [None]
  - SKIN EXFOLIATION [None]
  - SKIN STRIAE [None]
  - SKIN WRINKLING [None]
